FAERS Safety Report 8520914-0 (Version None)
Quarter: 2012Q3

REPORT INFORMATION
  Report Type: 
  Country: None (occurrence: None)
  Receive Date: 20120719
  Receipt Date: 20120716
  Transmission Date: 20120928
  Serious: Yes (Death, Hospitalization, Other)
  Sender: FDA-Public Use
  Company Number: US-PFIZER INC-2012129905

PATIENT
  Sex: Male
  Weight: 113 kg

DRUGS (3)
  1. DILANTIN [Suspect]
     Indication: CONVULSION
     Dosage: 4X 100MG CAPSULES AT BED TIME
     Route: 048
  2. DILANTIN-125 [Suspect]
     Indication: CONVULSION
     Dosage: 300 MG, NASOGASTRIC/OROGASTRIC/PERORAL
     Route: 048
     Dates: start: 20120313, end: 20120313
  3. DILANTIN KAPSEAL [Suspect]
     Indication: CONVULSION
     Dosage: 100 MG FOUR CAPSULES AT BED TIME PER DAY
     Route: 048
     Dates: start: 20120318, end: 20120419

REACTIONS (1)
  - STEVENS-JOHNSON SYNDROME [None]
